FAERS Safety Report 11266202 (Version 1)
Quarter: 2015Q2

REPORT INFORMATION
  Report Type: Spontaneous
  Country: US (occurrence: None)
  Receive Date: 20150625
  Receipt Date: 20150625
  Transmission Date: 20150821
  Serious: Yes (Hospitalization)
  Sender: FDA-Public Use
  Company Number: A-US2014-110553

PATIENT
  Age: 79 Year
  Sex: Female

DRUGS (2)
  1. OPSUMIT [Suspect]
     Active Substance: MACITENTAN
     Indication: PULMONARY ARTERIAL HYPERTENSION
     Route: 048
  2. RIOCIGUAT (RIOCIGUAT) [Concomitant]
     Active Substance: RIOCIGUAT

REACTIONS (3)
  - Cardiac disorder [None]
  - Cardiac failure [None]
  - Tachycardia [None]

NARRATIVE: CASE EVENT DATE: 201412
